FAERS Safety Report 12348688 (Version 1)
Quarter: 2016Q2

REPORT INFORMATION
  Report Type: Spontaneous
  Country: JP (occurrence: JP)
  Receive Date: 20160509
  Receipt Date: 20160509
  Transmission Date: 20160815
  Serious: Yes (Other)
  Sender: FDA-Public Use
  Company Number: JP-WATSON-2016-09394

PATIENT
  Age: 59 Year
  Sex: Male

DRUGS (2)
  1. PACLITAXEL ALBUMIN [Suspect]
     Active Substance: PACLITAXEL
     Indication: CHEMOTHERAPY
     Dosage: 100 MG/M2, 1/WEEK
     Route: 051
     Dates: start: 201406
  2. CARBOPLATIN (UNKNOWN) [Suspect]
     Active Substance: CARBOPLATIN
     Indication: CHEMOTHERAPY
     Dosage: AREA UNDER THE CURVE OF 6, EVERY 4 WEEKS.
     Route: 065
     Dates: start: 201406

REACTIONS (7)
  - Leukopenia [Unknown]
  - Nausea [Unknown]
  - Neutropenia [Unknown]
  - Neuropathy peripheral [Unknown]
  - Thrombocytopenia [Unknown]
  - Alopecia [Unknown]
  - Arthralgia [Unknown]
